FAERS Safety Report 8340337-7 (Version None)
Quarter: 2012Q2

REPORT INFORMATION
  Report Type: 
  Country: None (occurrence: None)
  Receive Date: 20120507
  Receipt Date: 20120502
  Transmission Date: 20120825
  Serious: Yes (Death, Other)
  Sender: FDA-Public Use
  Company Number: US-JNJFOC-20120504000

PATIENT
  Age: 47 Year
  Sex: Male

DRUGS (2)
  1. NUCYNTA ER [Suspect]
     Indication: PAIN MANAGEMENT
     Route: 048
  2. AN UNKNOWN MEDICATION [Concomitant]
     Indication: CARDIAC DISORDER
     Route: 065

REACTIONS (4)
  - DEATH [None]
  - DRUG ABUSE [None]
  - CARDIAC ARREST [None]
  - CONVULSION [None]
